FAERS Safety Report 11099380 (Version 3)
Quarter: 2015Q3

REPORT INFORMATION
  Report Type: Spontaneous
  Country: FR (occurrence: FR)
  Receive Date: 20150508
  Receipt Date: 20150803
  Transmission Date: 20151125
  Serious: Yes (Other)
  Sender: FDA-Public Use
  Company Number: FR-BIOGENIDEC-2015BI056650

PATIENT
  Age: 40 Year
  Sex: Male

DRUGS (6)
  1. XATRAL [Concomitant]
     Active Substance: ALFUZOSIN
  2. OXYNORM [Concomitant]
     Active Substance: OXYCODONE HYDROCHLORIDE
  3. TYSABRI [Suspect]
     Active Substance: NATALIZUMAB
     Indication: MULTIPLE SCLEROSIS
     Route: 042
     Dates: start: 20071016, end: 20150424
  4. LYRICA [Concomitant]
     Active Substance: PREGABALIN
  5. IMOVANE [Concomitant]
     Active Substance: ZOPICLONE
  6. TRAMADOL. [Concomitant]
     Active Substance: TRAMADOL

REACTIONS (1)
  - B-cell lymphoma [Not Recovered/Not Resolved]

NARRATIVE: CASE EVENT DATE: 201501
